FAERS Safety Report 15906138 (Version 1)
Quarter: 2019Q1

REPORT INFORMATION
  Report Type: Spontaneous
  Country: US (occurrence: US)
  Receive Date: 20190204
  Receipt Date: 20190204
  Transmission Date: 20190417
  Serious: No
  Sender: FDA-Public Use
  Company Number: US-ENDO PHARMACEUTICALS INC-2018-043021

PATIENT
  Sex: Female

DRUGS (2)
  1. CABERGOLINE. [Suspect]
     Active Substance: CABERGOLINE
     Indication: HORMONE THERAPY
     Dosage: 1 DF, TIW
     Route: 048
     Dates: start: 2016
  2. CABERGOLINE. [Suspect]
     Active Substance: CABERGOLINE
     Dosage: 2 DF, WEEKLY
     Route: 048

REACTIONS (7)
  - Gastrooesophageal reflux disease [Unknown]
  - Somnolence [Unknown]
  - Product administration error [Unknown]
  - Diarrhoea [Unknown]
  - Intentional dose omission [Unknown]
  - Intentional underdose [Unknown]
  - Product storage error [Unknown]

NARRATIVE: CASE EVENT DATE: 2018
